FAERS Safety Report 7373329-5 (Version None)
Quarter: 2011Q1

REPORT INFORMATION
  Report Type: 
  Country: None (occurrence: None)
  Receive Date: 20110324
  Receipt Date: 20110318
  Transmission Date: 20110831
  Serious: Yes (Other)
  Sender: FDA-Public Use
  Company Number: US-RB-009972-10

PATIENT
  Age: 33 Year
  Sex: Female

DRUGS (2)
  1. BUPRENORPHINE [Suspect]
     Indication: PRODUCT USED FOR UNKNOWN INDICATION
  2. SUBUTEX [Suspect]
     Indication: PRODUCT USED FOR UNKNOWN INDICATION
     Dosage: DOSING DETAILS UNKNOWN.
     Route: 065

REACTIONS (6)
  - VOMITING [None]
  - CHILLS [None]
  - ALPHA 1 FOETOPROTEIN ABNORMAL [None]
  - VOMITING IN PREGNANCY [None]
  - DRUG EXPOSURE DURING PREGNANCY [None]
  - HYPERHIDROSIS [None]
